FAERS Safety Report 9360885 (Version 2)
Quarter: 2013Q3

REPORT INFORMATION
  Report Type: Spontaneous
  Country: IT (occurrence: IT)
  Receive Date: 20130621
  Receipt Date: 20130802
  Transmission Date: 20140515
  Serious: Yes (Other)
  Sender: FDA-Public Use
  Company Number: IT-PFIZER INC-2013184357

PATIENT
  Age: 87 Year
  Sex: Female

DRUGS (5)
  1. HALCION [Suspect]
     Indication: DEMENTIA OF THE ALZHEIMER^S TYPE, WITH DEPRESSED MOOD
     Dosage: 1 DOSAGE FORM, ONCE DAILY
     Route: 048
     Dates: start: 20130115, end: 20130513
  2. TALOFEN [Interacting]
     Indication: DEMENTIA OF THE ALZHEIMER^S TYPE, WITH DEPRESSED MOOD
     Dosage: 30 DROPS, ONCE DAILY
     Route: 048
     Dates: start: 20130107, end: 20130513
  3. TRITTICO [Interacting]
     Indication: DEMENTIA OF THE ALZHEIMER^S TYPE, WITH DEPRESSED MOOD
     Dosage: 2 DOSAGE FORM, ONCE DAILY
     Route: 048
     Dates: start: 20130102, end: 20130513
  4. MODURETIC [Concomitant]
     Dosage: 1 DF, UNK
     Route: 048
  5. ELOPRAM [Concomitant]
     Dosage: 5 GTT, UNK
     Route: 048

REACTIONS (3)
  - Drug interaction [Recovered/Resolved]
  - Depressed level of consciousness [Recovered/Resolved]
  - Psychomotor skills impaired [Recovered/Resolved]
